FAERS Safety Report 8042519-0 (Version None)
Quarter: 2012Q1

REPORT INFORMATION
  Report Type: 
  Country: None (occurrence: None)
  Receive Date: 20120112
  Receipt Date: 20120105
  Transmission Date: 20120608
  Serious: Yes (Hospitalization)
  Sender: FDA-Public Use
  Company Number: US-ALEXION-A201101567

PATIENT
  Sex: Male

DRUGS (4)
  1. CALCIUM [Concomitant]
     Dosage: UNK, 1 CAPSULE QD
  2. ACETAMINOPHEN [Concomitant]
     Indication: PREMEDICATION
     Dosage: 650 MG UNK
     Route: 048
  3. SOLIRIS [Suspect]
     Indication: PAROXYSMAL NOCTURNAL HAEMOGLOBINURIA
     Dosage: 900 MG, Q2W
     Route: 042
  4. SYNTHROID [Concomitant]
     Dosage: 200 UG, QD

REACTIONS (7)
  - HAEMOLYSIS [None]
  - WEIGHT DECREASED [None]
  - FATIGUE [None]
  - BLOOD COUNT ABNORMAL [None]
  - THYROID CANCER [None]
  - ANAEMIA [None]
  - DYSPHAGIA [None]
